FAERS Safety Report 7524502-4 (Version None)
Quarter: 2011Q2

REPORT INFORMATION
  Report Type: 
  Country: None (occurrence: None)
  Receive Date: 20110606
  Receipt Date: 20110120
  Transmission Date: 20111010
  Serious: Yes (Hospitalization)
  Sender: FDA-Public Use
  Company Number: US-BAYER-200936491NA

PATIENT
  Sex: Female
  Weight: 57.143 kg

DRUGS (28)
  1. MAXALT [Concomitant]
     Indication: MIGRAINE
     Dosage: 10 MG, UNK
     Dates: start: 20040301, end: 20090401
  2. NITROFURANTOIN [Concomitant]
     Dosage: UNK
     Dates: start: 20040101
  3. RESTASIS [Concomitant]
     Dosage: UNK
     Dates: start: 20040101
  4. SPIRONOLACTONE [Concomitant]
     Dosage: UNK
     Dates: start: 20040101
  5. AMBIEN [Concomitant]
     Dosage: UNK
     Dates: start: 20040101
  6. ZOLPIDEM TARTRATE [Concomitant]
     Dosage: UNK
     Dates: start: 20040101
  7. DETROL [Concomitant]
     Dosage: UNK
     Dates: start: 20040101
  8. HYDROCODONE BITARTRATE [Concomitant]
     Dosage: UNK
     Dates: start: 20040101
  9. TOPAMAX [Concomitant]
     Dosage: UNK
     Dates: start: 20040101
  10. CEPHALEXIN [Concomitant]
     Dosage: UNK
     Dates: start: 20040101
  11. TOPIRAMATE [Concomitant]
     Dosage: UNK
     Dates: start: 20040101
  12. ISOMETHEPTENE/DICHLORALPHENAZONE/APAP [Concomitant]
     Indication: MIGRAINE
     Dosage: UNK
     Dates: start: 20040301, end: 20090401
  13. CITALOPRAM [Concomitant]
     Dosage: 40 MG, UNK
     Dates: start: 20040101
  14. PSEUDOVENT [Concomitant]
     Dosage: UNK
     Dates: start: 20040101
  15. OMNICEF [Concomitant]
     Dosage: UNK
     Dates: start: 20040101
  16. DURADRIN [Concomitant]
     Dosage: UNK
     Dates: start: 20040101
  17. COMPRO [Concomitant]
     Dosage: UNK
     Dates: start: 20040101
  18. PROMETRIUM [Concomitant]
     Dosage: UNK
     Dates: start: 20040101
  19. RENOVA [Concomitant]
     Dosage: UNK
     Dates: start: 20040101
  20. AZITHROMYCIN [Concomitant]
     Dosage: UNK
     Dates: start: 20040101
  21. METRONIDAZOLE [Concomitant]
     Dosage: UNK
     Dates: start: 20040101
  22. YASMIN [Suspect]
     Indication: CONTRACEPTION
     Dosage: UNK
     Dates: start: 20041001, end: 20041101
  23. CLARITHROMYCIN [Concomitant]
     Dosage: UNK
     Dates: start: 20040101
  24. PATANOL [Concomitant]
     Dosage: UNK
     Dates: start: 20040101
  25. CELEBREX [Concomitant]
     Dosage: UNK
     Dates: start: 20080401
  26. CELEXA [Concomitant]
     Indication: DEPRESSION
     Dosage: 40 MG, UNK
     Dates: start: 20040101
  27. CIPROFLOXACIN HCL [Concomitant]
     Dosage: UNK
     Dates: start: 20040101
  28. CHROMAGEN FORTE [Concomitant]
     Dosage: UNK
     Dates: start: 20040101

REACTIONS (1)
  - PULMONARY EMBOLISM [None]
